FAERS Safety Report 4457775-5 (Version None)
Quarter: 2004Q3

REPORT INFORMATION
  Report Type: 
  Country: None (occurrence: None)
  Receive Date: 20040922
  Receipt Date: 20040909
  Transmission Date: 20050211
  Serious: Yes (Hospitalization)
  Sender: FDA-Public Use
  Company Number: 2004064536

PATIENT
  Age: 3 Year
  Sex: Male

DRUGS (1)
  1. UNASYN [Suspect]
     Indication: ACINETOBACTER INFECTION
     Dosage: 750 MG, INTRAVENOUS
     Route: 042
     Dates: start: 20040823, end: 20040909

REACTIONS (4)
  - CHILLS [None]
  - PYREXIA [None]
  - SOMNOLENCE [None]
  - VOMITING [None]
